APPROVED DRUG PRODUCT: DEHYDRATED ALCOHOL
Active Ingredient: DEHYDRATED ALCOHOL
Strength: 98% (5ML)
Dosage Form/Route: SOLUTION;INTRAVENOUS
Application: N214988 | Product #001
Applicant: ROYAL PHARMACEUTICALS LLC
Approved: Oct 23, 2025 | RLD: Yes | RS: Yes | Type: RX